FAERS Safety Report 10096125 (Version 1)
Quarter: 2014Q2

REPORT INFORMATION
  Report Type: Spontaneous
  Country: US (occurrence: US)
  Receive Date: 20140422
  Receipt Date: 20140422
  Transmission Date: 20141212
  Serious: Yes (Hospitalization)
  Sender: FDA-Public Use
  Company Number: US-ASTRAZENECA-2014SE26493

PATIENT
  Age: 17 Year
  Sex: Male
  Weight: 72.6 kg

DRUGS (10)
  1. SEROQUEL [Suspect]
     Indication: BIPOLAR DISORDER
     Route: 048
     Dates: start: 2013
  2. SEROQUEL [Suspect]
     Indication: SLEEP DISORDER
     Route: 048
     Dates: start: 2013
  3. SEROQUEL [Suspect]
     Indication: BIPOLAR DISORDER
     Route: 048
     Dates: start: 2014
  4. SEROQUEL [Suspect]
     Indication: SLEEP DISORDER
     Route: 048
     Dates: start: 2014
  5. SEROQUEL [Suspect]
     Indication: BIPOLAR DISORDER
     Dosage: QUETIAPINE NOR, 200 MG DAILY
     Route: 048
     Dates: start: 20140203
  6. SEROQUEL [Suspect]
     Indication: SLEEP DISORDER
     Dosage: QUETIAPINE NOR, 200 MG DAILY
     Route: 048
     Dates: start: 20140203
  7. SEROQUEL [Suspect]
     Indication: BIPOLAR DISORDER
     Route: 048
     Dates: start: 20140310, end: 20140311
  8. SEROQUEL [Suspect]
     Indication: SLEEP DISORDER
     Route: 048
     Dates: start: 20140310, end: 20140311
  9. SEROQUEL [Suspect]
     Indication: BIPOLAR DISORDER
     Dosage: QUETIAPINE TEV, 200 MG DAILY
     Route: 048
     Dates: start: 20140407
  10. SEROQUEL [Suspect]
     Indication: SLEEP DISORDER
     Dosage: QUETIAPINE TEV, 200 MG DAILY
     Route: 048
     Dates: start: 20140407

REACTIONS (12)
  - Lyme disease [Unknown]
  - Exposure to mould [Unknown]
  - Mood swings [Unknown]
  - Mania [Unknown]
  - Somnolence [Unknown]
  - Fatigue [Unknown]
  - Hypersomnia [Unknown]
  - Somnolence [Unknown]
  - Intentional product misuse [Unknown]
  - Intentional product misuse [Unknown]
  - Off label use [Unknown]
  - Drug effect incomplete [Unknown]
